FAERS Safety Report 9263227 (Version 2)
Quarter: 2013Q2

REPORT INFORMATION
  Report Type: Spontaneous
  Country: AU (occurrence: AU)
  Receive Date: 20130430
  Receipt Date: 20130430
  Transmission Date: 20140414
  Serious: Yes (Hospitalization, Other)
  Sender: FDA-Public Use
  Company Number: AU-PFIZER INC-2013130590

PATIENT
  Age: 18 Year
  Sex: Male

DRUGS (11)
  1. PARECOXIB SODIUM [Suspect]
     Dosage: UNK
     Route: 042
     Dates: start: 20130211, end: 20130211
  2. CEFAZOLIN [Suspect]
     Dosage: UNK
     Route: 042
     Dates: start: 20130211, end: 20130211
  3. MIDAZOLAM HCL [Suspect]
     Dosage: UNK
     Route: 042
     Dates: start: 20130211, end: 20130211
  4. DEXAMETHASONE SODIUM PHOSPHATE [Suspect]
     Dosage: UNK
     Route: 042
     Dates: start: 20130211, end: 20130211
  5. METRONIDAZOLE [Suspect]
     Dosage: UNK
     Route: 040
     Dates: start: 20130211, end: 20130211
  6. PARACETAMOL [Suspect]
     Dosage: UNK
     Route: 042
     Dates: start: 20130211
  7. GRANISETRON [Suspect]
     Dosage: UNK
     Route: 042
     Dates: start: 20130211, end: 20130211
  8. ATRACURIUM BESILATE [Suspect]
     Dosage: UNK
     Route: 042
     Dates: start: 20130211, end: 20130211
  9. FENTANYL [Suspect]
     Dosage: UNK
     Route: 042
     Dates: start: 20130211, end: 20130211
  10. PROPOFOL [Suspect]
     Dosage: UNK
     Route: 042
     Dates: start: 20130211, end: 20130211
  11. SEVOFLURANE [Suspect]
     Dosage: UNK
     Route: 055
     Dates: start: 20130211, end: 20130211

REACTIONS (2)
  - Hypotension [Recovered/Resolved]
  - Rash [Recovered/Resolved]
